FAERS Safety Report 14738536 (Version 17)
Quarter: 2020Q3

REPORT INFORMATION
  Report Type: Report from Study
  Country: US (occurrence: US)
  Receive Date: 20180409
  Receipt Date: 20200706
  Transmission Date: 20201102
  Serious: Yes (Death, Hospitalization, Other)
  Sender: FDA-Public Use
  Company Number: US-ACTELION-A-US2017-163581

PATIENT
  Age: 66 Year
  Sex: Male
  Weight: 71.2 kg

DRUGS (33)
  1. UPTRAVI [Suspect]
     Active Substance: SELEXIPAG
     Dosage: 200 MCG, BID
     Route: 048
     Dates: start: 20190207
  2. UPTRAVI [Suspect]
     Active Substance: SELEXIPAG
     Dosage: 600 MCG, BID
     Route: 048
  3. ELIQUIS [Concomitant]
     Active Substance: APIXABAN
     Dosage: UNK
     Dates: start: 20141217
  4. TIKOSYN [Concomitant]
     Active Substance: DOFETILIDE
     Dosage: UNK
     Dates: start: 20141217
  5. ZYRTEC [Concomitant]
     Active Substance: CETIRIZINE HYDROCHLORIDE
     Dosage: UNK
     Dates: start: 20140530
  6. DOFETILIDE. [Concomitant]
     Active Substance: DOFETILIDE
     Dosage: UNK
     Dates: start: 20190410
  7. FUROSEMIDE. [Concomitant]
     Active Substance: FUROSEMIDE
     Dosage: UNK
     Dates: start: 20141217
  8. ALBUTEROL SULFATE. [Concomitant]
     Active Substance: ALBUTEROL SULFATE
     Dosage: UNK
     Dates: start: 20190410
  9. UPTRAVI [Suspect]
     Active Substance: SELEXIPAG
     Dosage: UNK
     Route: 048
     Dates: start: 20171108
  10. ACETAZOLAMIDE. [Concomitant]
     Active Substance: ACETAZOLAMIDE
     Dosage: UNK
     Dates: start: 20190410
  11. LASIX [Concomitant]
     Active Substance: FUROSEMIDE
     Dosage: UNK
     Dates: start: 20190410
  12. XARELTO [Concomitant]
     Active Substance: RIVAROXABAN
  13. ADCIRCA [Concomitant]
     Active Substance: TADALAFIL
     Dosage: 20 MG, QD
  14. SIMBRINZA [Concomitant]
     Active Substance: BRIMONIDINE TARTRATE\BRINZOLAMIDE
     Dosage: UNK
     Dates: start: 20180511
  15. ARFORMOTEROL [Concomitant]
     Active Substance: ARFORMOTEROL
     Dosage: UNK
     Dates: start: 20190410
  16. AZITHROMYCIN ANHYDROUS. [Concomitant]
     Active Substance: AZITHROMYCIN ANHYDROUS
     Dosage: UNK
     Dates: start: 20190410
  17. CEFTRIAXONE. [Concomitant]
     Active Substance: CEFTRIAXONE
     Dosage: UNK
     Dates: start: 20190410
  18. UPTRAVI [Suspect]
     Active Substance: SELEXIPAG
     Dosage: 1600 MCG, BID
     Route: 048
  19. XALATAN [Concomitant]
     Active Substance: LATANOPROST
     Dosage: UNK, 0.005%
     Dates: start: 20180511
  20. BUDESONIDE. [Concomitant]
     Active Substance: BUDESONIDE
     Dosage: UNK
     Dates: start: 20190410
  21. CETIRIZINE [Concomitant]
     Active Substance: CETIRIZINE HYDROCHLORIDE
     Dosage: UNK
     Dates: start: 20190410
  22. TORSEMIDE. [Concomitant]
     Active Substance: TORSEMIDE
     Dosage: UNK
     Dates: start: 20190410
  23. UPTRAVI [Suspect]
     Active Substance: SELEXIPAG
     Dosage: 1200 MCG, BID
     Route: 048
  24. UPTRAVI [Suspect]
     Active Substance: SELEXIPAG
     Dosage: 1400 MCG, BID
     Route: 048
     Dates: start: 20180214, end: 20180808
  25. METOPROLOL. [Concomitant]
     Active Substance: METOPROLOL
     Dosage: UNK
     Dates: start: 20190410
  26. RIVAROXABAN [Concomitant]
     Active Substance: RIVAROXABAN
     Dosage: UNK
     Dates: start: 20190410
  27. OPSUMIT [Suspect]
     Active Substance: MACITENTAN
     Indication: PULMONARY ARTERIAL HYPERTENSION
     Dosage: 10 MG, QD
     Route: 048
     Dates: start: 20170807, end: 20200101
  28. UPTRAVI [Suspect]
     Active Substance: SELEXIPAG
     Indication: PULMONARY ARTERIAL HYPERTENSION
     Dosage: 400 MCG, BID
     Route: 048
     Dates: start: 201901
  29. ADCIRCA [Concomitant]
     Active Substance: TADALAFIL
     Dosage: 40 MG, QD
  30. TUDORZA PRESSAIR [Concomitant]
     Active Substance: ACLIDINIUM BROMIDE
     Dosage: UNK
     Dates: start: 20180214
  31. LEVALBUTEROL HCL [Concomitant]
     Active Substance: LEVALBUTEROL HYDROCHLORIDE
     Dosage: UNK
     Dates: start: 20190410
  32. PREDNISONE. [Concomitant]
     Active Substance: PREDNISONE
     Dosage: UNK
     Dates: start: 20190410
  33. DILTIAZEM. [Concomitant]
     Active Substance: DILTIAZEM
     Dosage: UNK
     Dates: start: 20190522

REACTIONS (49)
  - Lung disorder [Unknown]
  - Adverse drug reaction [Unknown]
  - Unresponsive to stimuli [Unknown]
  - Bronchiectasis [Recovered/Resolved with Sequelae]
  - Hyperphosphataemia [Unknown]
  - Pleural effusion [Unknown]
  - Condition aggravated [Unknown]
  - Chronic obstructive pulmonary disease [Recovered/Resolved with Sequelae]
  - Peripheral swelling [Recovered/Resolved with Sequelae]
  - Pneumonia influenzal [Unknown]
  - Diarrhoea [Recovered/Resolved]
  - Hypoxia [Unknown]
  - Malaise [Unknown]
  - Cardiac pacemaker replacement [Recovered/Resolved with Sequelae]
  - Pulmonary hypertension [Recovering/Resolving]
  - Lethargy [Unknown]
  - Oedema [Recovered/Resolved with Sequelae]
  - Acute kidney injury [Recovered/Resolved with Sequelae]
  - Respiratory acidosis [Unknown]
  - Hypotension [Unknown]
  - Multiple organ dysfunction syndrome [Fatal]
  - Pericardial effusion [Recovered/Resolved with Sequelae]
  - Weight decreased [Unknown]
  - Nasal oedema [Unknown]
  - Flushing [Recovering/Resolving]
  - Unevaluable event [Recovering/Resolving]
  - Blood creatinine increased [Recovered/Resolved with Sequelae]
  - Jaw disorder [Unknown]
  - Fatigue [Unknown]
  - Decreased appetite [Unknown]
  - Cardiac rehabilitation therapy [Unknown]
  - Therapy non-responder [Unknown]
  - Dyspnoea [Recovered/Resolved with Sequelae]
  - Oxygen saturation decreased [Unknown]
  - Respiratory failure [Recovered/Resolved with Sequelae]
  - Blood bicarbonate increased [Unknown]
  - Hyperkalaemia [Unknown]
  - Pain in jaw [Recovering/Resolving]
  - Asthenia [Unknown]
  - Blood pressure decreased [Unknown]
  - Acute respiratory failure [Fatal]
  - Hypercapnia [Unknown]
  - Acidosis [Unknown]
  - Eye haemorrhage [Unknown]
  - Balance disorder [Unknown]
  - Complication associated with device [Recovered/Resolved with Sequelae]
  - Fluid overload [Recovered/Resolved with Sequelae]
  - Pulmonary sepsis [Unknown]
  - Headache [Recovering/Resolving]

NARRATIVE: CASE EVENT DATE: 20180131
